FAERS Safety Report 13777755 (Version 2)
Quarter: 2017Q3

REPORT INFORMATION
  Report Type: Spontaneous
  Country: PL (occurrence: PL)
  Receive Date: 20170721
  Receipt Date: 20170728
  Transmission Date: 20171127
  Serious: Yes (Hospitalization, Other)
  Sender: FDA-Public Use
  Company Number: PL-PFIZER INC-2017312904

PATIENT
  Age: 51 Year
  Sex: Male

DRUGS (3)
  1. CISPLATIN. [Suspect]
     Active Substance: CISPLATIN
     Indication: TONGUE NEOPLASM
     Dosage: 180 MG, UNK; ON DAY 1
  2. DOCETAXEL. [Suspect]
     Active Substance: DOCETAXEL
     Indication: TONGUE NEOPLASM
     Dosage: 140 MG, UNK; ON DAY 1
  3. FLUOROURACIL. [Suspect]
     Active Substance: FLUOROURACIL
     Indication: TONGUE NEOPLASM
     Dosage: 1800 MG/DAY BY CONTINUOUS INFUSION OVER 96 HOURS

REACTIONS (2)
  - Acute kidney injury [Recovering/Resolving]
  - Oliguria [Recovering/Resolving]
